FAERS Safety Report 5033371-6 (Version None)
Quarter: 2006Q2

REPORT INFORMATION
  Report Type: 
  Country: None (occurrence: None)
  Receive Date: 20060620
  Receipt Date: 20060607
  Transmission Date: 20061013
  Serious: Yes (Other)
  Sender: FDA-Public Use
  Company Number: 2006072766

PATIENT
  Sex: Female

DRUGS (1)
  1. TOLTERODINE TARTRATE [Suspect]
     Indication: ILL-DEFINED DISORDER
     Dosage: ORAL
     Route: 048
     Dates: start: 20050101, end: 20060101

REACTIONS (1)
  - MACULAR OEDEMA [None]
